FAERS Safety Report 5738615-0 (Version None)
Quarter: 2008Q2

REPORT INFORMATION
  Report Type: 
  Country: None (occurrence: None)
  Receive Date: 20080513
  Receipt Date: 20080513
  Transmission Date: 20081010
  Serious: No
  Sender: FDA-Public Use
  Company Number: None

PATIENT

DRUGS (1)
  1. SINGULAIR [Suspect]

REACTIONS (22)
  - ABDOMINAL PAIN UPPER [None]
  - ABNORMAL BEHAVIOUR [None]
  - ACTIVITIES OF DAILY LIVING IMPAIRED [None]
  - ANXIETY [None]
  - COGNITIVE DISORDER [None]
  - CONTUSION [None]
  - CRYING [None]
  - DECREASED APPETITE [None]
  - DISTURBANCE IN ATTENTION [None]
  - EMOTIONAL DISORDER [None]
  - FEAR [None]
  - HALLUCINATION [None]
  - ILL-DEFINED DISORDER [None]
  - IRRITABILITY [None]
  - MENTAL DISORDER [None]
  - MYDRIASIS [None]
  - PAIN IN EXTREMITY [None]
  - RESTLESSNESS [None]
  - SLEEP TERROR [None]
  - SOCIAL PROBLEM [None]
  - TIC [None]
  - VOMITING [None]
